FAERS Safety Report 12617507 (Version 2)
Quarter: 2016Q3

REPORT INFORMATION
  Report Type: Spontaneous
  Country: US (occurrence: US)
  Receive Date: 20160803
  Receipt Date: 20160803
  Transmission Date: 20161109
  Serious: Yes (Death)
  Sender: FDA-Public Use
  Company Number: US-CIPLA LTD.-2016US10158

PATIENT

DRUGS (4)
  1. SERTRALINE [Suspect]
     Active Substance: SERTRALINE HYDROCHLORIDE
     Route: 065
  2. CETIRIZINE HYDROCHLORIDE. [Suspect]
     Active Substance: CETIRIZINE HYDROCHLORIDE
     Route: 065
  3. GUAIFENESIN. [Suspect]
     Active Substance: GUAIFENESIN
     Route: 065
  4. ETHANOL [Suspect]
     Active Substance: ALCOHOL
     Route: 065

REACTIONS (4)
  - Toxicity to various agents [Fatal]
  - Depressed level of consciousness [Fatal]
  - Cardiac arrest [Fatal]
  - Completed suicide [Fatal]
